FAERS Safety Report 15011389 (Version 2)
Quarter: 2018Q2

REPORT INFORMATION
  Report Type: Spontaneous
  Country: US (occurrence: US)
  Receive Date: 20180614
  Receipt Date: 20180622
  Transmission Date: 20180711
  Serious: Yes (Other)
  Sender: FDA-Public Use
  Company Number: US-PFIZER INC-2018239829

PATIENT
  Age: 39 Year
  Sex: Male

DRUGS (6)
  1. BACLOFEN. [Suspect]
     Active Substance: BACLOFEN
     Indication: BACK PAIN
     Dosage: 447.4 UG, DAILY
     Route: 037
  2. BUPIVACAINE HCL [Suspect]
     Active Substance: BUPIVACAINE HYDROCHLORIDE
     Dosage: 0.013 MG, DAILY (6 OPTIONAL DAILY BOLUS DOSES)
     Route: 040
  3. BUPIVACAINE HCL [Suspect]
     Active Substance: BUPIVACAINE HYDROCHLORIDE
     Indication: BACK PAIN
     Dosage: 3.343 MG, DAILY (3.3431 MG/DAY)
     Route: 037
  4. HYDROMORPHONE HYDROCHLORIDE. [Suspect]
     Active Substance: HYDROMORPHONE HYDROCHLORIDE
     Indication: BACK PAIN
     Dosage: 24.506 MG, DAILY
     Route: 037
  5. HYDROMORPHONE HYDROCHLORIDE. [Suspect]
     Active Substance: HYDROMORPHONE HYDROCHLORIDE
     Dosage: 0.1 MG, AS NEEDED (6 OPTIONAL DAILY BOLUS DOSES)
     Route: 040
  6. BACLOFEN. [Suspect]
     Active Substance: BACLOFEN
     Dosage: 1.8 UG, AS NEEDED (6 OPTIONAL DAILY BOLUS DOSES)
     Route: 040

REACTIONS (1)
  - Arachnoiditis [Unknown]
